FAERS Safety Report 24401418 (Version 2)
Quarter: 2024Q4

REPORT INFORMATION
  Report Type: Report from Study
  Country: BE (occurrence: BE)
  Receive Date: 20241007
  Receipt Date: 20241017
  Transmission Date: 20250115
  Serious: Yes (Life-Threatening)
  Sender: JOHNSON AND JOHNSON
  Company Number: BE-JNJFOC-20240255802

PATIENT
  Sex: Male
  Weight: 81 kg

DRUGS (3)
  1. MACITENTAN [Suspect]
     Active Substance: MACITENTAN
     Indication: Pulmonary arterial hypertension
     Route: 048
     Dates: start: 20230210
  2. SELEXIPAG [Suspect]
     Active Substance: SELEXIPAG
     Indication: Product used for unknown indication
     Route: 065
  3. TADALAFIL [Concomitant]
     Active Substance: TADALAFIL
     Indication: Pulmonary arterial hypertension
     Route: 048
     Dates: start: 20230210

REACTIONS (11)
  - Lung adenocarcinoma stage IV [Not Recovered/Not Resolved]
  - Intermittent claudication [Unknown]
  - Dyspnoea exertional [Not Recovered/Not Resolved]
  - Rhinitis [Recovered/Resolved]
  - Hyperaesthesia [Recovered/Resolved]
  - Gynaecomastia [Recovered/Resolved]
  - Dry skin [Recovered/Resolved]
  - Weight increased [Recovered/Resolved]
  - Dyspnoea [Not Recovered/Not Resolved]
  - Flank pain [Not Recovered/Not Resolved]
  - Anaemia [Not Recovered/Not Resolved]

NARRATIVE: CASE EVENT DATE: 20231205
